FAERS Safety Report 4761945-6 (Version None)
Quarter: 2005Q3

REPORT INFORMATION
  Report Type: 
  Country: None (occurrence: None)
  Receive Date: 20050906
  Receipt Date: 20030922
  Transmission Date: 20060218
  Serious: Yes (Other)
  Sender: FDA-Public Use
  Company Number: ES-AMGEN-US049682

PATIENT
  Sex: Female

DRUGS (2)
  1. ENBREL [Suspect]
     Indication: RHEUMATOID ARTHRITIS
     Dates: start: 20030626
  2. TETANUS VACCINE [Concomitant]
     Dates: start: 20030701

REACTIONS (1)
  - HEPATITIS B ANTIBODY POSITIVE [None]
